FAERS Safety Report 7809286-4 (Version None)
Quarter: 2011Q4

REPORT INFORMATION
  Report Type: 
  Country: None (occurrence: None)
  Receive Date: 20111012
  Receipt Date: 20111010
  Transmission Date: 20120403
  Serious: Yes (Hospitalization)
  Sender: FDA-Public Use
  Company Number: US-ABBOTT-11P-163-0855982-00

PATIENT
  Sex: Male

DRUGS (7)
  1. HUMIRA [Suspect]
     Indication: PSORIASIS
     Dosage: 80 MG INITIAL DOSE
     Dates: start: 20110902, end: 20110902
  2. PERCOCET [Concomitant]
     Indication: BACK PAIN
     Dosage: 10/325MG
  3. TEKTURNA [Concomitant]
     Indication: HYPERTENSION
  4. METFORMIN HYDROCHLORIDE [Concomitant]
     Indication: DIABETES MELLITUS
  5. HUMIRA [Suspect]
     Dates: start: 20110907, end: 20110916
  6. GLIPIZIDE [Concomitant]
     Indication: DIABETES MELLITUS
  7. LANTUS [Concomitant]
     Indication: DIABETES MELLITUS

REACTIONS (4)
  - HERNIA [None]
  - INJECTION SITE SWELLING [None]
  - ABDOMINAL PAIN [None]
  - INJECTION SITE PAIN [None]
